FAERS Safety Report 19865685 (Version 1)
Quarter: 2021Q3

REPORT INFORMATION
  Report Type: Spontaneous
  Country: US (occurrence: US)
  Receive Date: 20210921
  Receipt Date: 20210921
  Transmission Date: 20211014
  Serious: Yes (Hospitalization)
  Sender: FDA-Public Use
  Company Number: None

PATIENT
  Age: 76 Year
  Sex: Female
  Weight: 106 kg

DRUGS (2)
  1. CARBOPLATIN. [Suspect]
     Active Substance: CARBOPLATIN
     Dates: end: 20210818
  2. TAXOL [Suspect]
     Active Substance: PACLITAXEL
     Dates: end: 20210818

REACTIONS (20)
  - Dysphagia [None]
  - Electrocardiogram ST-T change [None]
  - Hypocalcaemia [None]
  - Troponin increased [None]
  - Cough [None]
  - Fatigue [None]
  - Hypophagia [None]
  - Hypomagnesaemia [None]
  - Lymphocyte count decreased [None]
  - Respiratory failure [None]
  - Hypokalaemia [None]
  - Pneumonitis [None]
  - Dyspnoea [None]
  - Pulmonary embolism [None]
  - Hypotension [None]
  - Oesophagitis [None]
  - White blood cell count decreased [None]
  - Oxygen saturation decreased [None]
  - Oesophageal pain [None]
  - Decreased appetite [None]

NARRATIVE: CASE EVENT DATE: 20210917
